FAERS Safety Report 23119106 (Version 2)
Quarter: 2023Q4

REPORT INFORMATION
  Report Type: Spontaneous
  Country: NL (occurrence: NL)
  Receive Date: 20231028
  Receipt Date: 20231110
  Transmission Date: 20240109
  Serious: Yes (Other)
  Sender: FDA-Public Use
  Company Number: None

PATIENT
  Age: 60 Year
  Sex: Male
  Weight: 87 kg

DRUGS (8)
  1. TAMSULOSIN HYDROCHLORIDE [Suspect]
     Active Substance: TAMSULOSIN HYDROCHLORIDE
     Indication: Lower urinary tract symptoms
     Dosage: .4 MILLIGRAM DAILY; 1 PIECE ONCE A DAY, TAMSULOSINE CAPSULE MGA 0,4MG / BRAND NAME NOT SPECIFIED
     Dates: start: 20200101, end: 20230922
  2. TAMSULOSIN HYDROCHLORIDE [Suspect]
     Active Substance: TAMSULOSIN HYDROCHLORIDE
     Indication: Benign prostatic hyperplasia
  3. ENALAPRIL [Suspect]
     Active Substance: ENALAPRIL
     Indication: Hypertension
     Dosage: 20 MILLIGRAM DAILY; 1 PIECE ONCE A DAY, ENALAPRIL TABLET 20MG / BRAND NAME NOT SPECIFIED
     Dates: start: 20100101
  4. METOPROLOL [Concomitant]
     Active Substance: METOPROLOL
     Indication: Product used for unknown indication
     Dosage: 50 MILLIGRAM DAILY; TABLET 25 MG 2 TIMES A DAY, METOPROLOL TABLET  12,5MG / BRAND NAME NOT SPECIFIED
  5. FENTANYL [Concomitant]
     Active Substance: FENTANYL\FENTANYL CITRATE
     Indication: Product used for unknown indication
     Dosage: FENTANYL PLASTER 50UG/HOUR (GENERIC+DUROGESIC) / BRAND NAME NOT SPECIFIED
  6. ACETAMINOPHEN [Concomitant]
     Active Substance: ACETAMINOPHEN
     Indication: Product used for unknown indication
     Dosage: 500 MG (MILLIGRAM), PARACETAMOL TABLET  500MG / BRAND NAME NOT SPECIFIED
  7. EDOXABAN TOSYLATE [Concomitant]
     Active Substance: EDOXABAN TOSYLATE
     Indication: Product used for unknown indication
     Dosage: 60 MG (MILLIGRAM),  EDOXABAN TABLET 60MG / LIXIANA TABLET FILM COVER 60MG
  8. OMEPRAZOLE [Concomitant]
     Active Substance: OMEPRAZOLE
     Indication: Product used for unknown indication
     Dosage: 20 MG (MILLIGRAM), OMEPRAZOL CAPSULE MSR 20MG / BRAND NAME NOT SPECIFIED

REACTIONS (4)
  - Hip fracture [Recovering/Resolving]
  - Dizziness postural [Recovering/Resolving]
  - Blood pressure decreased [Recovering/Resolving]
  - Fall [Recovering/Resolving]
